FAERS Safety Report 5960302-4 (Version None)
Quarter: 2008Q4

REPORT INFORMATION
  Report Type: 
  Country: None (occurrence: None)
  Receive Date: 20081120
  Receipt Date: 20070912
  Transmission Date: 20090506
  Serious: Yes (Death)
  Sender: FDA-Public Use
  Company Number: GB-AMGEN-US243541

PATIENT
  Age: 72 Year
  Sex: Male
  Weight: 84 kg

DRUGS (9)
  1. ENBREL [Suspect]
     Indication: RHEUMATOID ARTHRITIS
     Route: 058
     Dates: start: 20050101, end: 20050308
  2. HUMIRA [Suspect]
     Indication: RHEUMATOID ARTHRITIS
     Route: 058
     Dates: start: 20050308, end: 20050510
  3. ASPIRIN [Concomitant]
     Indication: CARDIOVASCULAR EVENT PROPHYLAXIS
     Dosage: 75 MG FREQUENCY UNKNOWN
     Route: 048
  4. DIGOXIN [Concomitant]
     Indication: ATRIAL FIBRILLATION
     Dosage: 125 UG FREQUENCY UNKNOWN
     Route: 048
  5. CELECOXIB [Concomitant]
     Dosage: UNKNOWN
  6. RISEDRONATE SODIUM [Concomitant]
     Indication: OSTEOPOROSIS
     Dosage: 35 MG FREQUENCY UNKNOWN
     Route: 048
  7. ALENDRONATE SODIUM [Concomitant]
     Dosage: UNKNOWN
  8. AMLODIPINE [Concomitant]
     Dosage: UNKNOWN
  9. PREDNISOLONE [Concomitant]
     Indication: RHEUMATOID ARTHRITIS
     Dosage: 7.5 MG FREQUENCY UNKNOWN
     Route: 048

REACTIONS (3)
  - EXTRANODAL MARGINAL ZONE B-CELL LYMPHOMA (MALT TYPE) [None]
  - METASTATIC GASTRIC CANCER [None]
  - NON-HODGKIN'S LYMPHOMA [None]
